FAERS Safety Report 9438524 (Version 3)
Quarter: 2013Q4

REPORT INFORMATION
  Report Type: Spontaneous
  Country: CA (occurrence: CA)
  Receive Date: 20130802
  Receipt Date: 20131111
  Transmission Date: 20140711
  Serious: Yes (Hospitalization)
  Sender: FDA-Public Use
  Company Number: CA-GLAXOSMITHKLINE-A1032168A

PATIENT
  Age: 66 Year
  Sex: Female

DRUGS (13)
  1. FLOLAN [Suspect]
     Indication: PULMONARY HYPERTENSION
     Route: 042
     Dates: start: 20130620
  2. FLOLAN DILUENT [Suspect]
     Indication: PULMONARY HYPERTENSION
     Route: 042
     Dates: start: 20130620
  3. OXYGEN [Concomitant]
  4. BOSENTAN [Concomitant]
     Dosage: 125MG TWICE PER DAY
  5. LASIX [Concomitant]
     Dosage: 40MG PER DAY
  6. GABAPENTIN [Concomitant]
     Dosage: 100MG TWICE PER DAY
  7. PARIET [Concomitant]
     Dosage: 20MG PER DAY
  8. GLYBURIDE [Concomitant]
     Dosage: 30MG TWICE PER DAY
  9. FOLIC ACID [Concomitant]
  10. VITAMIN D [Concomitant]
  11. VITAMIN B12 [Concomitant]
  12. TRAZODONE [Concomitant]
  13. PRISTIQ [Concomitant]
     Dosage: 50MG PER DAY

REACTIONS (8)
  - Nausea [Unknown]
  - Vomiting [Unknown]
  - Headache [Unknown]
  - Oxygen saturation decreased [Not Recovered/Not Resolved]
  - Malaise [Unknown]
  - Oropharyngeal pain [Not Recovered/Not Resolved]
  - Retinal detachment [Not Recovered/Not Resolved]
  - Lymphadenopathy [Not Recovered/Not Resolved]
